FAERS Safety Report 13656527 (Version 2)
Quarter: 2017Q2

REPORT INFORMATION
  Report Type: Spontaneous
  Country: US (occurrence: US)
  Receive Date: 20170615
  Receipt Date: 20170619
  Transmission Date: 20170830
  Serious: No
  Sender: FDA-Public Use
  Company Number: US-XTTRIUM LABORATORIES, INC-2022081

PATIENT
  Sex: Female

DRUGS (1)
  1. SCRUB CARE EXIDINE -4 CHG [Suspect]
     Active Substance: CHLORHEXIDINE GLUCONATE
     Indication: HIDRADENITIS
     Route: 061
     Dates: start: 20160722, end: 20160831

REACTIONS (2)
  - Hypersensitivity [Unknown]
  - Application site discomfort [Unknown]

NARRATIVE: CASE EVENT DATE: 20160831
